FAERS Safety Report 12376687 (Version 2)
Quarter: 2016Q2

REPORT INFORMATION
  Report Type: Report from Study
  Country: US (occurrence: US)
  Receive Date: 20160517
  Receipt Date: 20160517
  Transmission Date: 20160815
  Serious: No
  Sender: FDA-Public Use
  Company Number: US-MALLINCKRODT-T201502818

PATIENT
  Age: 60 Year
  Sex: Female

DRUGS (1)
  1. REPOSITORY CORTICOTROPIN INJECTION [Suspect]
     Active Substance: CORTICOTROPIN
     Indication: POLYMYOSITIS
     Dosage: 80 UNITS TWICE A WEEK
     Route: 058

REACTIONS (7)
  - Pruritus [Unknown]
  - Dry skin [Unknown]
  - Pain [Unknown]
  - Hypertension [Unknown]
  - Swelling face [Unknown]
  - Erythema [Unknown]
  - Dry mouth [Unknown]

NARRATIVE: CASE EVENT DATE: 201505
